FAERS Safety Report 24176152 (Version 1)
Quarter: 2024Q3

REPORT INFORMATION
  Report Type: Spontaneous
  Country: CN (occurrence: CN)
  Receive Date: 20240806
  Receipt Date: 20240806
  Transmission Date: 20241017
  Serious: Yes (Hospitalization)
  Sender: STRIDES
  Company Number: CN-STRIDES ARCOLAB LIMITED-2024SP009709

PATIENT
  Age: 47 Year
  Sex: Male

DRUGS (1)
  1. AMOXICILLIN [Suspect]
     Active Substance: AMOXICILLIN
     Indication: Product used for unknown indication
     Dosage: UNK, (REPEATEDLY RECEIVING AMOXICILLIN FOR 3 YEARS)
     Route: 065

REACTIONS (5)
  - Vanishing bile duct syndrome [Not Recovered/Not Resolved]
  - Biliary cirrhosis [Not Recovered/Not Resolved]
  - Cholestasis [Not Recovered/Not Resolved]
  - Hepatic failure [Unknown]
  - Drug-induced liver injury [Unknown]
